FAERS Safety Report 21776042 (Version 1)
Quarter: 2022Q4

REPORT INFORMATION
  Report Type: Spontaneous
  Country: US (occurrence: US)
  Receive Date: 20221226
  Receipt Date: 20221226
  Transmission Date: 20230112
  Serious: No
  Sender: FDA-Public Use
  Company Number: US-MIGRATION_PFIZER-2022BHV002427

PATIENT

DRUGS (1)
  1. NURTEC ODT [Suspect]
     Active Substance: RIMEGEPANT SULFATE
     Indication: Product used for unknown indication
     Dosage: NOT ONE BUT 2 NURTECODT HAVE BEEN TAKEN
     Route: 065

REACTIONS (2)
  - Incorrect dosage administered [Unknown]
  - Malaise [Unknown]

NARRATIVE: CASE EVENT DATE: 20220909
